FAERS Safety Report 9920448 (Version 1)
Quarter: 2014Q1

REPORT INFORMATION
  Report Type: Spontaneous
  Country: DE (occurrence: DE)
  Receive Date: 20140224
  Receipt Date: 20140224
  Transmission Date: 20141002
  Serious: Yes (Death, Life-Threatening)
  Sender: FDA-Public Use
  Company Number: DE-B.I. PHARMACEUTICALS,INC./RIDGEFIELD-2014-BI-07972DE

PATIENT
  Age: 88 Year
  Sex: Female

DRUGS (15)
  1. PRADAXA [Suspect]
     Indication: ATRIAL FIBRILLATION
     Dosage: 220 MG
     Route: 065
     Dates: start: 20111024, end: 20140217
  2. CALCIUM D RATIOPHARM 600MG/400I.E. [Concomitant]
     Route: 065
  3. DIGIMERCK MINOR [Concomitant]
     Route: 065
  4. DONAPEZIL STADA [Concomitant]
     Route: 065
  5. PANTOPRAZOL AL [Concomitant]
     Route: 065
  6. RAMIPRIL AL [Concomitant]
     Route: 065
  7. SPIRIVA [Concomitant]
     Route: 065
  8. TORASEMID AL [Concomitant]
     Route: 065
  9. XIPAMID AL [Concomitant]
     Route: 065
  10. CYMBALTA [Concomitant]
     Route: 065
  11. SALBUTAMOL RATIOPHARM N [Concomitant]
     Route: 065
  12. SYMBICORT TURBOHALER [Concomitant]
     Dosage: DOSE PER APPLICATION: 320/9 MCG
     Route: 065
  13. PANTOPRAZOL [Concomitant]
     Dosage: 80 MG
     Route: 065
  14. LOPERAMID STADA [Concomitant]
     Indication: DIARRHOEA
     Dosage: 6 MG
     Route: 065
  15. NOVALGIN [Concomitant]
     Indication: ABDOMINAL PAIN UPPER
     Dosage: DOSE PER APPLICATION: 40 DROPS
     Route: 065

REACTIONS (1)
  - Diarrhoea haemorrhagic [Fatal]
